FAERS Safety Report 9736106 (Version 2)
Quarter: 2014Q1

REPORT INFORMATION
  Report Type: Report from Study
  Country: AU (occurrence: AU)
  Receive Date: 20131206
  Receipt Date: 20140306
  Transmission Date: 20141002
  Serious: Yes (Hospitalization)
  Sender: FDA-Public Use
  Company Number: AU-GLAXOSMITHKLINE-B0950745A

PATIENT
  Age: 40 Year
  Sex: Male
  Weight: 85 kg

DRUGS (5)
  1. DABRAFENIB [Suspect]
     Indication: METASTATIC MALIGNANT MELANOMA
     Dosage: 150MG TWICE PER DAY
     Route: 048
     Dates: start: 20130723
  2. TRAMETINIB [Suspect]
     Indication: METASTATIC MALIGNANT MELANOMA
     Dosage: 2MG PER DAY
     Route: 048
     Dates: start: 20130723
  3. CEFEPIM [Suspect]
     Indication: RESPIRATORY TRACT INFECTION
     Dosage: 2G THREE TIMES PER DAY
     Route: 042
     Dates: start: 20131123, end: 20131127
  4. CEPHALEXIN [Suspect]
     Indication: RESPIRATORY TRACT INFECTION
     Dosage: 500MG THREE TIMES PER DAY
     Route: 048
     Dates: start: 20131119, end: 20131122
  5. AZITHROMYCIN [Suspect]
     Indication: RESPIRATORY TRACT INFECTION
     Dosage: 500MG PER DAY
     Route: 048
     Dates: start: 20131128

REACTIONS (5)
  - Pyrexia [Recovered/Resolved]
  - Neutropenia [Recovered/Resolved]
  - Hepatic function abnormal [Unknown]
  - Nausea [Unknown]
  - Vomiting [Unknown]
